FAERS Safety Report 20217150 (Version 1)
Quarter: 2021Q4

REPORT INFORMATION
  Report Type: Report from Study
  Country: US (occurrence: US)
  Receive Date: 20211222
  Receipt Date: 20211222
  Transmission Date: 20220303
  Serious: Yes (Other)
  Sender: FDA-Public Use
  Company Number: US-PFIZER INC-202101741517

PATIENT

DRUGS (1)
  1. TRASTUZUMAB [Suspect]
     Active Substance: TRASTUZUMAB
     Indication: Neoplasm
     Dosage: 8 MG/KG, CYCLIC, (8 MG/KG LOADING DOSE FOLLOWED BY 6 MG/KG ONCE EVERY 3 WEEKS)
     Route: 042

REACTIONS (2)
  - Febrile neutropenia [Unknown]
  - Platelet count decreased [Unknown]
